FAERS Safety Report 6614288-X (Version None)
Quarter: 2010Q1

REPORT INFORMATION
  Report Type: 
  Country: None (occurrence: None)
  Receive Date: 20100304
  Receipt Date: 20061128
  Transmission Date: 20100710
  Serious: No
  Sender: FDA-Public Use
  Company Number: US-CEPHALON-2009011929

PATIENT

DRUGS (2)
  1. FENTORA [Suspect]
     Indication: MULTIPLE SCLEROSIS
     Route: 002
  2. FENTORA [Suspect]
     Indication: PAIN

REACTIONS (2)
  - DRUG INEFFECTIVE FOR UNAPPROVED INDICATION [None]
  - DRUG PRESCRIBING ERROR [None]
